FAERS Safety Report 23672846 (Version 1)
Quarter: 2024Q1

REPORT INFORMATION
  Report Type: Spontaneous
  Country: US (occurrence: US)
  Receive Date: 20240326
  Receipt Date: 20240326
  Transmission Date: 20240409
  Serious: No
  Sender: FDA-Public Use
  Company Number: US-TEVA-VS-3149912

PATIENT

DRUGS (3)
  1. QVAR REDIHALER [Suspect]
     Active Substance: BECLOMETHASONE DIPROPIONATE
     Indication: Cough variant asthma
     Dosage: 80 MCG/DOSE?INHALER
     Route: 065
  2. QVAR REDIHALER [Suspect]
     Active Substance: BECLOMETHASONE DIPROPIONATE
     Dosage: 40MCG/DOSE? 2 PUFFS 2X DAY
     Route: 065
  3. QVAR REDIHALER [Suspect]
     Active Substance: BECLOMETHASONE DIPROPIONATE

REACTIONS (6)
  - Off label use [Unknown]
  - Cough variant asthma [Unknown]
  - Therapy change [Unknown]
  - Malaise [Unknown]
  - Device issue [Unknown]
  - Device issue [Unknown]
